FAERS Safety Report 8758525 (Version 1)
Quarter: 2012Q4

REPORT INFORMATION
  Report Type: 
  Country: US (occurrence: US)
  Receive Date: 20120829
  Receipt Date: 20120829
  Transmission Date: 20130627
  Serious: Yes (Hospitalization)
  Sender: FDA-Public Use
  Company Number: US-GLAXOSMITHKLINE-A0973843A

PATIENT
  Age: 29 Year
  Sex: Female

DRUGS (3)
  1. ACYCLOVIR [Suspect]
     Indication: HERPES ZOSTER
     Route: 048
     Dates: start: 200203, end: 200203
  2. PROZAC [Concomitant]
  3. FAMVIR [Concomitant]

REACTIONS (1)
  - Nausea [Recovered/Resolved]
